FAERS Safety Report 6414882-5 (Version None)
Quarter: 2009Q4

REPORT INFORMATION
  Report Type: 
  Country: None (occurrence: None)
  Receive Date: 20091026
  Receipt Date: 20091026
  Transmission Date: 20100525
  Serious: No
  Sender: FDA-Public Use
  Company Number: None

PATIENT
  Age: 1 Month
  Sex: Male
  Weight: 5.4432 kg

DRUGS (6)
  1. HYDROCORTISONE 1% -5 GRAMS MIXED W/ JAR OF ACID MANTLE 1 POUND JAR [Suspect]
     Indication: ECZEMA
     Dosage: 1 LAYER APPLIED TO ENTIRE BODY TWICE DAILY TOP; TWICE DAILY OFF AND ON
     Route: 061
     Dates: start: 20090126, end: 20090630
  2. HYDROCORTISONE 1% -5 GRAMS MIXED W/ JAR OF ACID MANTLE 1 POUND JAR [Suspect]
     Indication: SEBORRHOEIC DERMATITIS
     Dosage: 1 LAYER APPLIED TO ENTIRE BODY TWICE DAILY TOP; TWICE DAILY OFF AND ON
     Route: 061
     Dates: start: 20090126, end: 20090630
  3. HYDROCORTISONE 1% -5 GRAMS MIXED W/ JAR OF ACID MANTLE 1 POUND JAR [Suspect]
     Indication: ECZEMA
     Dosage: 1 LAYER APPLIED TO ENTIRE BODY TWICE DAILY TOP; TWICE DAILY OFF AND ON
     Route: 061
     Dates: start: 20090801, end: 20091012
  4. HYDROCORTISONE 1% -5 GRAMS MIXED W/ JAR OF ACID MANTLE 1 POUND JAR [Suspect]
     Indication: SEBORRHOEIC DERMATITIS
     Dosage: 1 LAYER APPLIED TO ENTIRE BODY TWICE DAILY TOP; TWICE DAILY OFF AND ON
     Route: 061
     Dates: start: 20090801, end: 20091012
  5. VERDESO [Concomitant]
  6. CUTIVATE [Concomitant]

REACTIONS (5)
  - DRUG DEPENDENCE [None]
  - DRUG INEFFECTIVE [None]
  - RASH [None]
  - REBOUND EFFECT [None]
  - STEROID WITHDRAWAL SYNDROME [None]
